FAERS Safety Report 4421087-6 (Version None)
Quarter: 2004Q3

REPORT INFORMATION
  Report Type: 
  Country: None (occurrence: None)
  Receive Date: 20040803
  Receipt Date: 20040728
  Transmission Date: 20050211
  Serious: Yes (Hospitalization, Other)
  Sender: FDA-Public Use
  Company Number: US-JNJFOC-20040306149

PATIENT
  Age: 44 Year
  Sex: Female

DRUGS (6)
  1. OKT3          (MUROMONAB-CD3) INJECTION [Suspect]
     Indication: SYSTEMIC SCLEROSIS
  2. CYTOXAN [Suspect]
     Indication: SYSTEMIC SCLEROSIS
     Dosage: 400 MG, 5 IN 1 DAY, INTRAVENOUS
     Route: 042
     Dates: start: 20040308, end: 20040312
  3. FLUDARABINE PHOSPHATE [Suspect]
     Indication: SYSTEMIC SCLEROSIS
     Dosage: 25 MG/M2, 5 IN 1 DAY, INTRAVENOUS
     Route: 042
     Dates: start: 20040308, end: 20040312
  4. THYMOGLOBULIN (ANTITHYMOCYTE  IMMUNOGLOBULIN) [Concomitant]
  5. MESNA [Concomitant]
  6. CHEMOTHERAPY (ANTINEOPLASITC AGENTS) [Concomitant]

REACTIONS (8)
  - CARDIAC TAMPONADE [None]
  - DRUG INTERACTION [None]
  - HAEMODYNAMIC INSTABILITY [None]
  - PERICARDIAL EFFUSION [None]
  - PLEURAL EFFUSION [None]
  - POST PROCEDURAL COMPLICATION [None]
  - STEM CELL TRANSPLANT [None]
  - THERAPY NON-RESPONDER [None]
